FAERS Safety Report 5291312-0 (Version None)
Quarter: 2007Q2

REPORT INFORMATION
  Report Type: 
  Country: None (occurrence: None)
  Receive Date: 20070409
  Receipt Date: 20070403
  Transmission Date: 20071010
  Serious: Yes (Hospitalization)
  Sender: FDA-Public Use
  Company Number: FR-PFIZER INC-2007026661

PATIENT
  Age: 89 Year
  Sex: Female

DRUGS (12)
  1. FELDENE [Suspect]
     Indication: MYALGIA
     Route: 048
     Dates: start: 20070208, end: 20070218
  2. VENLAFAXINE HCL [Suspect]
     Route: 048
     Dates: start: 20070224, end: 20070225
  3. BROMAZEPAM [Concomitant]
  4. ZOLPIDEM TARTRATE [Concomitant]
  5. TRIMETAZIDINE DIHYDROCHLORIDE [Concomitant]
  6. BUDESONIDE [Concomitant]
  7. SALMETEROL XINAFOATE [Concomitant]
  8. HEXAQUINE [Concomitant]
  9. RELVENE [Concomitant]
  10. ETHINYL ESTRADIOL TAB [Concomitant]
  11. FENOFIBRATE [Concomitant]
  12. TRIMEBUTINE MALEATE [Concomitant]

REACTIONS (2)
  - CONFUSIONAL STATE [None]
  - HYPONATRAEMIA [None]
